FAERS Safety Report 11375551 (Version 1)
Quarter: 2015Q3

REPORT INFORMATION
  Report Type: Spontaneous
  Country: US (occurrence: US)
  Receive Date: 20150813
  Receipt Date: 20150813
  Transmission Date: 20151125
  Serious: Yes (Other)
  Sender: FDA-Public Use
  Company Number: US-AMGEN-USASP2015080697

PATIENT
  Age: 75 Year
  Sex: Male
  Weight: 67 kg

DRUGS (4)
  1. VITAMIN D                          /00107901/ [Concomitant]
     Active Substance: ERGOCALCIFEROL
  2. CALCIUM [Concomitant]
     Active Substance: CALCIUM
  3. SUTENT [Suspect]
     Active Substance: SUNITINIB MALATE
     Indication: PRODUCT USED FOR UNKNOWN INDICATION
     Dosage: 37.5 MG, (28 DAYS ON/14 DAYS OFF)
     Route: 065
     Dates: start: 20150114
  4. XGEVA [Suspect]
     Active Substance: DENOSUMAB
     Indication: PRODUCT USED FOR UNKNOWN INDICATION
     Dosage: UNK
     Route: 065

REACTIONS (15)
  - White blood cell count decreased [Unknown]
  - Platelet count decreased [Unknown]
  - Weight decreased [Unknown]
  - Gingival pain [Unknown]
  - Dysgeusia [Unknown]
  - Nodule [Unknown]
  - Diarrhoea [Unknown]
  - Blood glucose abnormal [Unknown]
  - Pulmonary mass [Unknown]
  - Stomatitis [Unknown]
  - Gingival bleeding [Unknown]
  - Renal impairment [Unknown]
  - Seizure [Unknown]
  - Chromaturia [Unknown]
  - Dehydration [Unknown]
